FAERS Safety Report 10850575 (Version 1)
Quarter: 2015Q1

REPORT INFORMATION
  Report Type: Spontaneous
  Country: US (occurrence: US)
  Receive Date: 20150222
  Receipt Date: 20150222
  Transmission Date: 20150721
  Serious: No
  Sender: FDA-Public Use
  Company Number: US-ALLERGAN-1403824US

PATIENT
  Sex: Female

DRUGS (2)
  1. BOTOX COSMETIC [Suspect]
     Active Substance: ONABOTULINUMTOXINA
     Indication: SKIN WRINKLING
     Dosage: 20 UNITS, SINGLE
     Route: 030
  2. ASA [Concomitant]
     Active Substance: ASPIRIN
     Indication: HANGOVER
     Dosage: UNK
     Route: 048

REACTIONS (2)
  - Injection site pain [Unknown]
  - Injection site urticaria [Unknown]
